FAERS Safety Report 4505816-9 (Version None)
Quarter: 2004Q4

REPORT INFORMATION
  Report Type: 
  Country: None (occurrence: None)
  Receive Date: 20041119
  Receipt Date: 20041109
  Transmission Date: 20050328
  Serious: Yes (Life-Threatening)
  Sender: FDA-Public Use
  Company Number: JP-JNJFOC-20041102776

PATIENT
  Age: 81 Year
  Sex: Female

DRUGS (12)
  1. CRAVIT [Suspect]
     Route: 049
     Dates: start: 20041017, end: 20041023
  2. OMEPRAL [Suspect]
     Indication: DRUG USE FOR UNKNOWN INDICATION
     Dates: end: 20041023
  3. NORVASC [Concomitant]
     Dates: end: 20041023
  4. VASOMET [Concomitant]
     Dates: end: 20041023
  5. LIPOVAS [Concomitant]
     Dates: end: 20041023
  6. SELBEX [Concomitant]
     Route: 049
     Dates: end: 20041023
  7. MAGLAX [Concomitant]
     Route: 049
     Dates: end: 20041023
  8. DEPAS [Concomitant]
     Route: 049
     Dates: end: 20041023
  9. ASPARA-CA [Concomitant]
     Indication: OSTEOPOROSIS
     Route: 049
     Dates: end: 20041023
  10. NEOMALLERMIN-TR [Concomitant]
     Route: 049
     Dates: end: 20041023
  11. VICCILLIN [Concomitant]
     Route: 042
     Dates: start: 20040927, end: 20041016
  12. DALACIN [Concomitant]
     Route: 042
     Dates: start: 20040927, end: 20041016

REACTIONS (7)
  - CIRCULATORY COLLAPSE [None]
  - DRUG INTERACTION [None]
  - HYPONATRAEMIA [None]
  - HYPOTHERMIA [None]
  - INAPPROPRIATE ANTIDIURETIC HORMONE SECRETION [None]
  - LOSS OF CONSCIOUSNESS [None]
  - PNEUMONIA [None]
